FAERS Safety Report 11357905 (Version 1)
Quarter: 2015Q3

REPORT INFORMATION
  Report Type: Spontaneous
  Country: US (occurrence: US)
  Receive Date: 20150803
  Receipt Date: 20150803
  Transmission Date: 20151125
  Serious: Yes (Other)
  Sender: FDA-Public Use
  Company Number: US-ELI_LILLY_AND_COMPANY-US201002007265

PATIENT
  Age: 14 Year
  Sex: Male

DRUGS (2)
  1. STRATTERA [Suspect]
     Active Substance: ATOMOXETINE HYDROCHLORIDE
     Indication: ATTENTION DEFICIT/HYPERACTIVITY DISORDER
     Dosage: 80 MG, UNK
     Dates: start: 201001, end: 20100214
  2. STRATTERA [Suspect]
     Active Substance: ATOMOXETINE HYDROCHLORIDE

REACTIONS (9)
  - Reading disorder [Recovering/Resolving]
  - Tremor [Recovering/Resolving]
  - Delusional perception [Recovering/Resolving]
  - Emotional disorder [Recovering/Resolving]
  - Aphasia [Recovering/Resolving]
  - Eating disorder symptom [Recovering/Resolving]
  - Disturbance in attention [Recovering/Resolving]
  - Hallucination, visual [Recovering/Resolving]
  - Hallucination, auditory [Recovering/Resolving]

NARRATIVE: CASE EVENT DATE: 2010
